FAERS Safety Report 4495411-2 (Version None)
Quarter: 2004Q4

REPORT INFORMATION
  Report Type: 
  Country: None (occurrence: None)
  Receive Date: 20041104
  Receipt Date: 20041018
  Transmission Date: 20050328
  Serious: Yes (Death)
  Sender: FDA-Public Use
  Company Number: 2004-BP-10498RO

PATIENT
  Age: 49 Year

DRUGS (3)
  1. COCAINE HCL TOPICAL SOLUTION, 10% (COCAINE) [Suspect]
  2. AMITRIPTYLINE HCL [Suspect]
  3. ETHANOL (ETHANOL) [Suspect]

REACTIONS (2)
  - DRUG ABUSER [None]
  - MULTIPLE DRUG OVERDOSE INTENTIONAL [None]
